FAERS Safety Report 7166154-1 (Version None)
Quarter: 2010Q4

REPORT INFORMATION
  Report Type: 
  Country: None (occurrence: None)
  Receive Date: 20101216
  Receipt Date: 20101202
  Transmission Date: 20110411
  Serious: Yes (Hospitalization, Other)
  Sender: FDA-Public Use
  Company Number: US-ELI_LILLY_AND_COMPANY-US201009004726

PATIENT
  Sex: Female

DRUGS (4)
  1. FORTEO [Suspect]
     Indication: OSTEOPOROSIS
     Dosage: 20 UG, DAILY (1/D)
     Dates: start: 20090617
  2. COMBIVENT [Concomitant]
     Indication: CHRONIC OBSTRUCTIVE PULMONARY DISEASE
     Dosage: UNK, DAILY (1/D)
  3. COMBIVENT [Concomitant]
     Dosage: UNK, 3/D
  4. ACTINEX [Concomitant]

REACTIONS (13)
  - BLINDNESS [None]
  - CHRONIC OBSTRUCTIVE PULMONARY DISEASE [None]
  - COLONIC OBSTRUCTION [None]
  - DRUG DOSE OMISSION [None]
  - EMOTIONAL DISORDER [None]
  - GASTRIC DISORDER [None]
  - GASTRIC ULCER [None]
  - GASTROINTESTINAL INFECTION [None]
  - INTESTINAL OBSTRUCTION [None]
  - MACULAR DEGENERATION [None]
  - MALAISE [None]
  - PAIN [None]
  - POST-TRAUMATIC STRESS DISORDER [None]
